FAERS Safety Report 5477481-8 (Version None)
Quarter: 2007Q4

REPORT INFORMATION
  Report Type: 
  Country: None (occurrence: None)
  Receive Date: 20071004
  Receipt Date: 20070926
  Transmission Date: 20080405
  Serious: Yes (Other)
  Sender: FDA-Public Use
  Company Number: GB-PFIZER INC-2007081093

PATIENT
  Age: 33 Year
  Sex: Female

DRUGS (3)
  1. VARENICLINE TABLETS [Suspect]
     Indication: SMOKING CESSATION THERAPY
     Route: 048
     Dates: start: 20070705, end: 20070712
  2. ERYTHROMYCIN [Concomitant]
     Indication: SINUSITIS
     Route: 048
     Dates: start: 20070705, end: 20070710
  3. MOMETASONE FUROATE [Concomitant]
     Indication: DERMATITIS CONTACT
     Route: 061

REACTIONS (3)
  - ARTHRALGIA [None]
  - LETHARGY [None]
  - SWELLING FACE [None]
